FAERS Safety Report 5631565-X (Version None)
Quarter: 2008Q1

REPORT INFORMATION
  Report Type: 
  Country: None (occurrence: None)
  Receive Date: 20080212
  Receipt Date: 20080205
  Transmission Date: 20080703
  Serious: Yes (Hospitalization, Other)
  Sender: FDA-Public Use
  Company Number: 023545

PATIENT
  Age: 56 Year
  Sex: Female

DRUGS (12)
  1. CYCLOSPORINE [Suspect]
  2. AZATHIOPRINE [Concomitant]
  3. PREDNISONE TAB [Concomitant]
  4. NIFEDIPINE [Concomitant]
  5. LEVOTHYROXINE SODIUM [Concomitant]
  6. CALCITRIOL [Concomitant]
  7. COTRIM [Concomitant]
  8. FOLIC ACID [Concomitant]
  9. CALCIUM CARBONATE (CALCIUM CARBONATE) [Concomitant]
  10. VITAMIN A [Concomitant]
  11. MULTIVITAMINS (ERGOCALCIFEROL, PANTHENOL, NICOTINAMIDE, RIBOFLAVIN, TH [Concomitant]
  12. PNEUMOCOCCAL VACCINE (PNEUMOCOCCAL VACCINE) [Concomitant]

REACTIONS (5)
  - ANTINUCLEAR ANTIBODY POSITIVE [None]
  - CARDIAC MURMUR [None]
  - DIALYSIS [None]
  - RED BLOOD CELL SEDIMENTATION RATE INCREASED [None]
  - RENAL FAILURE CHRONIC [None]
